FAERS Safety Report 4284473-3 (Version None)
Quarter: 2004Q1

REPORT INFORMATION
  Report Type: 
  Country: None (occurrence: None)
  Receive Date: 20040130
  Receipt Date: 20040112
  Transmission Date: 20041129
  Serious: Yes (Disabling, Other)
  Sender: FDA-Public Use
  Company Number: US_980300756

PATIENT
  Age: 68 Year
  Sex: Male
  Weight: 81 kg

DRUGS (5)
  1. HUMALOG [Suspect]
     Indication: DIABETES MELLITUS
  2. HUMULIN R [Suspect]
     Indication: DIABETES MELLITUS
     Dates: start: 19750101
  3. CARDIZEM [Concomitant]
  4. LANTUS [Concomitant]
  5. LISINOPRIL [Concomitant]

REACTIONS (16)
  - BLINDNESS UNILATERAL [None]
  - BLISTER [None]
  - BLOOD GLUCOSE DECREASED [None]
  - BLOOD GLUCOSE INCREASED [None]
  - CARDIAC OPERATION [None]
  - CATARACT [None]
  - DIABETIC COMA [None]
  - FOOT AMPUTATION [None]
  - LOCALISED INFECTION [None]
  - MEDICATION ERROR [None]
  - PHARMACEUTICAL PRODUCT COMPLAINT [None]
  - RETINAL DISORDER [None]
  - SKIN DISCOLOURATION [None]
  - TOE AMPUTATION [None]
  - VISION BLURRED [None]
  - WEIGHT DECREASED [None]
